FAERS Safety Report 7818419-5 (Version None)
Quarter: 2011Q4

REPORT INFORMATION
  Report Type: 
  Country: None (occurrence: None)
  Receive Date: 20111017
  Receipt Date: 20111006
  Transmission Date: 20120403
  Serious: Yes (Hospitalization, Congenital Anomaly, Other)
  Sender: FDA-Public Use
  Company Number: DE-ASTRAZENECA-2011SE60179

PATIENT
  Age: 0 Year
  Sex: Female
  Weight: 2 kg

DRUGS (4)
  1. AZATHIOPRINE [Suspect]
     Indication: CROHN'S DISEASE
     Route: 064
  2. FOLIO [Concomitant]
     Indication: PROPHYLAXIS OF NEURAL TUBE DEFECT
     Route: 064
  3. AZATHIOPRINE [Suspect]
     Route: 064
  4. ATENOLOL [Suspect]
     Indication: HYPERTENSION
     Route: 064
     Dates: start: 20071230, end: 20080918

REACTIONS (3)
  - CONGENITAL TRICUSPID VALVE INCOMPETENCE [None]
  - SMALL FOR DATES BABY [None]
  - ATRIAL SEPTAL DEFECT [None]
